FAERS Safety Report 12580333 (Version 1)
Quarter: 2016Q3

REPORT INFORMATION
  Report Type: Spontaneous
  Country: US (occurrence: US)
  Receive Date: 20160721
  Receipt Date: 20160721
  Transmission Date: 20161109
  Serious: No
  Sender: FDA-Public Use
  Company Number: US-JAZZ-2016-US-001327

PATIENT
  Age: 42 Year
  Sex: Female
  Weight: 61.22 kg

DRUGS (11)
  1. XYREM [Suspect]
     Active Substance: SODIUM OXYBATE
     Indication: SLEEP DISORDER
     Dosage: 2.5 G, BID
     Route: 048
     Dates: start: 20160124
  2. LORATADINE. [Concomitant]
     Active Substance: LORATADINE
     Indication: ANXIETY
     Dosage: UNK
     Dates: start: 20160115
  3. LEXAPRO [Concomitant]
     Active Substance: ESCITALOPRAM OXALATE
     Indication: ANXIETY
     Dosage: UNK
     Dates: start: 20160115
  4. COLACE [Concomitant]
     Active Substance: DOCUSATE SODIUM
     Indication: ANXIETY
     Dosage: UNK
     Dates: start: 20160115
  5. IRON [Concomitant]
     Active Substance: IRON
     Indication: ANXIETY
     Dosage: UNK
     Dates: start: 20160115
  6. VITAMIN B COMPLEX [Concomitant]
     Active Substance: CYANOCOBALAMIN\DEXPANTHENOL\NIACINAMIDE\PYRIDOXINE HYDROCHLORIDE\RIBOFLAVIN 5^-PHOSPHATE SODIUM\THIAMINE HYDROCHLORIDE\VITAMIN B COMPLEX
     Indication: ANXIETY
     Dosage: UNK
     Dates: start: 20160115
  7. TOPROL XL [Concomitant]
     Active Substance: METOPROLOL SUCCINATE
     Indication: HYPERTENSION
  8. METOPROLOL SUCCINATE. [Concomitant]
     Active Substance: METOPROLOL SUCCINATE
     Indication: ANXIETY
     Dosage: UNK
     Dates: start: 20160115
  9. MULTIVITAMINS [Concomitant]
     Active Substance: VITAMINS
     Indication: ANXIETY
     Dosage: UNK
     Dates: start: 20160115
  10. VALTREX [Concomitant]
     Active Substance: VALACYCLOVIR HYDROCHLORIDE
     Indication: ANXIETY
     Dosage: UNK
     Dates: start: 20160115
  11. VITAMIN D [Concomitant]
     Active Substance: CHOLECALCIFEROL
     Indication: ANXIETY
     Dosage: UNK
     Dates: start: 20160115

REACTIONS (1)
  - Dizziness [Unknown]

NARRATIVE: CASE EVENT DATE: 20160124
